FAERS Safety Report 5813491-6 (Version None)
Quarter: 2008Q3

REPORT INFORMATION
  Report Type: 
  Country: None (occurrence: None)
  Receive Date: 20080717
  Receipt Date: 20080714
  Transmission Date: 20090109
  Serious: Yes (Death)
  Sender: FDA-Public Use
  Company Number: US-GILEAD-2008-0017239

PATIENT
  Sex: Female
  Weight: 58.566 kg

DRUGS (14)
  1. LETAIRIS [Suspect]
     Indication: PULMONARY ARTERIAL HYPERTENSION
     Route: 048
     Dates: start: 20080616
  2. LASIX [Concomitant]
     Route: 048
  3. ENALAPRIL MALEATE [Concomitant]
     Route: 048
  4. ENALAPRIL MALEATE [Concomitant]
     Route: 048
  5. COREG [Concomitant]
     Route: 048
  6. ALBUTEROL [Concomitant]
     Route: 055
  7. IPRATROPIUM BROMIDE [Concomitant]
     Dosage: AS DIRECTED
     Route: 048
  8. SPIRIVA [Concomitant]
     Route: 055
  9. OXYGEN [Concomitant]
     Route: 055
  10. SYNTHROID [Concomitant]
     Route: 048
  11. ASPIRIN [Concomitant]
     Route: 048
  12. VYTORIN [Concomitant]
     Route: 048
  13. MULTI-VITAMIN [Concomitant]
     Route: 048
  14. AMBIEN [Concomitant]
     Route: 048

REACTIONS (1)
  - DEATH [None]
